FAERS Safety Report 5722528-4 (Version None)
Quarter: 2008Q2

REPORT INFORMATION
  Report Type: 
  Country: None (occurrence: None)
  Receive Date: 20080429
  Receipt Date: 20080102
  Transmission Date: 20081010
  Serious: No
  Sender: FDA-Public Use
  Company Number: US-ASTRAZENECA-2007UW25813

PATIENT
  Age: 63 Year
  Sex: Male
  Weight: 108.9 kg

DRUGS (3)
  1. NEXIUM [Suspect]
     Indication: DYSPHONIA
     Route: 048
     Dates: start: 20071001
  2. NEXIUM [Suspect]
     Indication: GASTROOESOPHAGEAL REFLUX DISEASE
     Route: 048
     Dates: start: 20071001
  3. SPIRIVA [Concomitant]

REACTIONS (4)
  - ABDOMINAL PAIN [None]
  - CHILLS [None]
  - CHROMATURIA [None]
  - PYREXIA [None]
